FAERS Safety Report 9323018 (Version 3)
Quarter: 2015Q3

REPORT INFORMATION
  Report Type: Spontaneous
  Country: KR (occurrence: KR)
  Receive Date: 20130603
  Receipt Date: 20150921
  Transmission Date: 20151125
  Serious: Yes (Hospitalization)
  Sender: FDA-Public Use
  Company Number: PHHY2013KR053441

PATIENT
  Age: 73 Year
  Sex: Male

DRUGS (1)
  1. DICLOFENAC [Suspect]
     Active Substance: DICLOFENAC
     Indication: BACK PAIN
     Dosage: QW3 (3 TIMES A WEEK)
     Route: 030

REACTIONS (9)
  - Skin necrosis [Recovered/Resolved]
  - Embolia cutis medicamentosa [Recovered/Resolved]
  - Application site necrosis [Recovered/Resolved]
  - Pseudomonas infection [Recovered/Resolved]
  - Injection site erythema [Recovered/Resolved]
  - Injection site pain [Recovered/Resolved]
  - Injection site inflammation [Recovered/Resolved]
  - Skin lesion [Recovered/Resolved]
  - Musculoskeletal pain [Recovered/Resolved]
